FAERS Safety Report 19886710 (Version 1)
Quarter: 2021Q3

REPORT INFORMATION
  Report Type: Report from Study
  Country: None (occurrence: US)
  Receive Date: 20210928
  Receipt Date: 20210928
  Transmission Date: 20211014
  Serious: Yes (Hospitalization)
  Sender: FDA-Public Use
  Company Number: US-ABBVIE-21K-163-4094229-00

PATIENT
  Age: 66 Year
  Sex: Female

DRUGS (2)
  1. DUOPA [Suspect]
     Active Substance: CARBIDOPA\LEVODOPA
  2. DUOPA [Suspect]
     Active Substance: CARBIDOPA\LEVODOPA
     Indication: PRODUCT USED FOR UNKNOWN INDICATION
     Route: 050
     Dates: start: 20150811

REACTIONS (5)
  - Vomiting [Unknown]
  - Device occlusion [Unknown]
  - Living in residential institution [Unknown]
  - Device colour issue [Unknown]
  - Nausea [Unknown]

NARRATIVE: CASE EVENT DATE: 20210919
